FAERS Safety Report 9112662 (Version 1)
Quarter: 2013Q1

REPORT INFORMATION
  Report Type: Spontaneous
  Country: US (occurrence: US)
  Receive Date: 20130211
  Receipt Date: 20130211
  Transmission Date: 20140127
  Serious: No
  Sender: FDA-Public Use
  Company Number: US-BAYER-2013-009525

PATIENT
  Sex: 0

DRUGS (2)
  1. ALEVE GELCAP [Suspect]
     Dosage: 3 DF, UNK
  2. TRAMADOL [Concomitant]

REACTIONS (1)
  - Incorrect dose administered [None]
